FAERS Safety Report 15762755 (Version 1)
Quarter: 2018Q4

REPORT INFORMATION
  Report Type: Spontaneous
  Country: IT (occurrence: IT)
  Receive Date: 20181226
  Receipt Date: 20181226
  Transmission Date: 20190205
  Serious: Yes (Hospitalization, Other)
  Sender: FDA-Public Use
  Company Number: GXKR2008IT02681

PATIENT
  Age: 55 Year
  Sex: Male

DRUGS (1)
  1. LOSARTAN. [Suspect]
     Active Substance: LOSARTAN
     Indication: HYPERTENSIVE CRISIS
     Route: 065

REACTIONS (2)
  - Psoriasis [Recovering/Resolving]
  - Pemphigoid [Recovered/Resolved]

NARRATIVE: CASE EVENT DATE: 200407
